FAERS Safety Report 5751569-6 (Version None)
Quarter: 2008Q2

REPORT INFORMATION
  Report Type: 
  Country: None (occurrence: None)
  Receive Date: 20080528
  Receipt Date: 20080519
  Transmission Date: 20081010
  Serious: Yes (Hospitalization)
  Sender: FDA-Public Use
  Company Number: PHHO2004NZ12320

PATIENT
  Sex: Female
  Weight: 54 kg

DRUGS (17)
  1. BLINDED CGS 20267 T30748+ [Suspect]
     Indication: BREAST CANCER
     Route: 048
     Dates: start: 20021220, end: 20040828
  2. BLINDED NO TREATMENT RECEIVED NOMED [Suspect]
     Indication: BREAST CANCER
     Route: 048
     Dates: start: 20021220, end: 20040828
  3. BLINDED PLACEBO PLACEBO [Suspect]
     Indication: BREAST CANCER
     Route: 048
     Dates: start: 20021220, end: 20040828
  4. TAMOXIFEN CITRATE [Suspect]
     Indication: BREAST CANCER
     Route: 048
     Dates: start: 20021220, end: 20040828
  5. TAMOXIFEN CITRATE [Suspect]
     Indication: BREAST CANCER
     Route: 048
     Dates: start: 20021220, end: 20040828
  6. BLINDED CGS 20267 T30748+ [Suspect]
     Dosage: NO MEDICATION
     Dates: start: 20040829, end: 20040829
  7. BLINDED NO TREATMENT RECEIVED NOMED [Suspect]
     Dosage: NO MEDICATION
     Dates: start: 20040829, end: 20040829
  8. BLINDED PLACEBO PLACEBO [Suspect]
     Dosage: NO MEDICATION
     Dates: start: 20040829, end: 20040829
  9. TAMOXIFEN CITRATE [Suspect]
     Dosage: NO MEDICATION
     Dates: start: 20040829, end: 20040829
  10. TAMOXIFEN CITRATE [Suspect]
     Dosage: NO MEDICATION
     Dates: start: 20040829, end: 20040829
  11. BLINDED CGS 20267 T30748+ [Suspect]
     Route: 048
     Dates: start: 20040830
  12. BLINDED NO TREATMENT RECEIVED NOMED [Suspect]
     Route: 048
     Dates: start: 20040830
  13. BLINDED PLACEBO PLACEBO [Suspect]
     Route: 048
     Dates: start: 20040830
  14. TAMOXIFEN CITRATE [Suspect]
     Route: 048
     Dates: start: 20040830
  15. TAMOXIFEN CITRATE [Suspect]
     Route: 048
     Dates: start: 20040830
  16. VALPROIC ACID [Concomitant]
  17. VALPROIC ACID [Concomitant]

REACTIONS (35)
  - ABNORMAL BEHAVIOUR [None]
  - ACTIVITIES OF DAILY LIVING IMPAIRED [None]
  - AGITATION [None]
  - AMNESIA [None]
  - APHASIA [None]
  - APRAXIA [None]
  - BRADYKINESIA [None]
  - BRAIN OEDEMA [None]
  - CEREBRAL ISCHAEMIA [None]
  - CEREBROVASCULAR DISORDER [None]
  - CIRCULATORY COLLAPSE [None]
  - COGNITIVE DISORDER [None]
  - CONFUSIONAL STATE [None]
  - CONTUSION [None]
  - EYE ROLLING [None]
  - FAECAL INCONTINENCE [None]
  - FALL [None]
  - GAIT DISTURBANCE [None]
  - HEMIPARESIS [None]
  - HYPERREFLEXIA [None]
  - HYPERTONIA [None]
  - LACUNAR INFARCTION [None]
  - LEUKOENCEPHALOPATHY [None]
  - LOSS OF CONSCIOUSNESS [None]
  - MASKED FACIES [None]
  - MOBILITY DECREASED [None]
  - MOVEMENT DISORDER [None]
  - NERVOUS SYSTEM DISORDER [None]
  - PITTING OEDEMA [None]
  - POOR QUALITY SLEEP [None]
  - REFLEXES ABNORMAL [None]
  - SYNCOPE [None]
  - TRANSIENT ISCHAEMIC ATTACK [None]
  - TREMOR [None]
  - URINARY INCONTINENCE [None]
